FAERS Safety Report 18286202 (Version 1)
Quarter: 2020Q3

REPORT INFORMATION
  Report Type: Spontaneous
  Country: US (occurrence: US)
  Receive Date: 20200919
  Receipt Date: 20200919
  Transmission Date: 20201103
  Serious: No
  Sender: FDA-Public Use
  Company Number: US-TEVA-2020-US-1828454

PATIENT
  Age: 73 Year
  Sex: Female

DRUGS (1)
  1. LIDOCAINE ACTAVIS [Suspect]
     Active Substance: LIDOCAINE
     Indication: BACK PAIN
     Route: 065

REACTIONS (6)
  - Application site pruritus [Unknown]
  - Product substitution issue [Unknown]
  - Application site urticaria [Unknown]
  - Drug hypersensitivity [Unknown]
  - Application site rash [Unknown]
  - Product use in unapproved indication [Unknown]
